FAERS Safety Report 6433062-0 (Version None)
Quarter: 2009Q4

REPORT INFORMATION
  Report Type: 
  Country: None (occurrence: None)
  Receive Date: 20091105
  Receipt Date: 20091021
  Transmission Date: 20100525
  Serious: Yes (Other)
  Sender: FDA-Public Use
  Company Number: 000390

PATIENT
  Sex: Female
  Weight: 48.9885 kg

DRUGS (12)
  1. LACOSAMIDE [Suspect]
     Indication: EPILEPSY
     Dosage: 400 MG BID, ORAL
     Route: 048
     Dates: start: 20050802
  2. ZONEGRAN [Concomitant]
  3. KEPPRA [Concomitant]
  4. ROBITUSSIN [Concomitant]
  5. SUDAFED 12 HOUR [Concomitant]
  6. TYLENOL (CAPLET) [Concomitant]
  7. RHINOCORT [Concomitant]
  8. ROLAIDS [Concomitant]
  9. BENADRYL [Concomitant]
  10. DEPO-PROVERA [Concomitant]
  11. ZICAM [Concomitant]
  12. NYQUIL [Concomitant]

REACTIONS (2)
  - BREAST CANCER IN SITU [None]
  - FIBROCYSTIC BREAST DISEASE [None]
